FAERS Safety Report 7222272-0 (Version None)
Quarter: 2011Q1

REPORT INFORMATION
  Report Type: 
  Country: None (occurrence: None)
  Receive Date: 20110112
  Receipt Date: 20110104
  Transmission Date: 20110831
  Serious: Yes (Hospitalization, Other)
  Sender: FDA-Public Use
  Company Number: US-MERCK-1010USA01918

PATIENT
  Age: 63 Year
  Sex: Female

DRUGS (2)
  1. FOSAMAX [Suspect]
     Indication: OSTEOPOROSIS
     Route: 048
     Dates: start: 20010129, end: 20090218
  2. ALENDRONATE SODIUM [Suspect]
     Indication: OSTEOPOROSIS
     Route: 048
     Dates: start: 20090219, end: 20100201

REACTIONS (24)
  - HYPOTENSION [None]
  - RADICULOPATHY [None]
  - INTERVERTEBRAL DISC PROTRUSION [None]
  - GRAM STAIN POSITIVE [None]
  - ANAEMIA [None]
  - ESCHERICHIA TEST POSITIVE [None]
  - FRACTURE NONUNION [None]
  - PAIN IN EXTREMITY [None]
  - DEVICE FAILURE [None]
  - HEADACHE [None]
  - URINARY TRACT INFECTION [None]
  - CARPAL TUNNEL SYNDROME [None]
  - MUSCLE SPASMS [None]
  - FEMUR FRACTURE [None]
  - PAIN [None]
  - MUSCLE STRAIN [None]
  - ROAD TRAFFIC ACCIDENT [None]
  - STAPHYLOCOCCUS TEST POSITIVE [None]
  - JOINT CONTRACTURE [None]
  - DEHYDRATION [None]
  - IMPAIRED HEALING [None]
  - OSTEOARTHRITIS [None]
  - OCCIPITAL NEURALGIA [None]
  - NECK PAIN [None]
